FAERS Safety Report 25096856 (Version 1)
Quarter: 2025Q1

REPORT INFORMATION
  Report Type: Spontaneous
  Country: US (occurrence: US)
  Receive Date: 20250319
  Receipt Date: 20250319
  Transmission Date: 20250409
  Serious: Yes (Hospitalization, Other)
  Sender: OXFORD PHARMACEUTICALS, LLC
  Company Number: US-Oxford Pharmaceuticals, LLC-2173206

PATIENT
  Age: 67 Year
  Sex: Female

DRUGS (8)
  1. LEVETIRACETAM [Suspect]
     Active Substance: LEVETIRACETAM
     Indication: Product used for unknown indication
  2. AMLODIPINE BESYLATE [Suspect]
     Active Substance: AMLODIPINE BESYLATE
  3. LEVOTHYROXINE [Suspect]
     Active Substance: LEVOTHYROXINE
  4. MELATONIN [Suspect]
     Active Substance: MELATONIN
  5. PANTOPRAZOLE SODIUM [Suspect]
     Active Substance: PANTOPRAZOLE SODIUM
  6. MIRTAZAPINE [Suspect]
     Active Substance: MIRTAZAPINE
  7. METOPROLOL [Suspect]
     Active Substance: METOPROLOL
  8. QUETIAPINE [Suspect]
     Active Substance: QUETIAPINE

REACTIONS (10)
  - Suicide attempt [Recovered/Resolved]
  - Lethargy [Recovered/Resolved]
  - Mental status changes [Recovered/Resolved]
  - Respiratory failure [Recovered/Resolved]
  - Blood creatine increased [Recovered/Resolved]
  - Metabolic acidosis [Recovered/Resolved]
  - Vasoplegia syndrome [Recovered/Resolved]
  - Hypotension [Recovered/Resolved]
  - Toxicity to various agents [Recovered/Resolved]
  - Intentional overdose [Unknown]
